FAERS Safety Report 14184413 (Version 1)
Quarter: 2017Q4

REPORT INFORMATION
  Report Type: Spontaneous
  Country: GB (occurrence: GB)
  Receive Date: 20171113
  Receipt Date: 20171113
  Transmission Date: 20180321
  Serious: Yes (Hospitalization)
  Sender: FDA-Public Use
  Company Number: GB-PFIZER INC-2017481081

PATIENT
  Age: 97 Year
  Sex: Female

DRUGS (4)
  1. COCODAMOL [Concomitant]
     Active Substance: ACETAMINOPHEN\CODEINE PHOSPHATE
     Dosage: UNK
  2. EYE DROPS /00256502/ [Concomitant]
     Active Substance: OXYMETAZOLINE
     Dosage: UNK
     Route: 050
  3. SIMVASTATIN. [Concomitant]
     Active Substance: SIMVASTATIN
     Dosage: UNK
  4. PREGABALIN. [Suspect]
     Active Substance: PREGABALIN
     Dosage: UNK

REACTIONS (7)
  - Constipation [Unknown]
  - Acute kidney injury [Unknown]
  - Dehydration [Unknown]
  - Decreased appetite [Unknown]
  - Confusional state [Unknown]
  - Brain natriuretic peptide increased [Unknown]
  - Mobility decreased [Unknown]
